FAERS Safety Report 18909086 (Version 3)
Quarter: 2021Q1

REPORT INFORMATION
  Report Type: Spontaneous
  Country: IT (occurrence: IT)
  Receive Date: 20210218
  Receipt Date: 20210316
  Transmission Date: 20210420
  Serious: Yes (Life-Threatening, Hospitalization, Other)
  Sender: FDA-Public Use
  Company Number: IT-ACCORD-217670

PATIENT
  Age: 41 Year
  Sex: Female
  Weight: 60.5 kg

DRUGS (1)
  1. GEMCITABINE/GEMCITABINE HYDROCHLORIDE [Suspect]
     Active Substance: GEMCITABINE\GEMCITABINE HYDROCHLORIDE
     Indication: OVARIAN CANCER
     Dosage: ON DAYS 1,8,15 IN A 28?DAY CYCLE
     Dates: start: 201909, end: 202001

REACTIONS (6)
  - Congestive cardiomyopathy [Recovering/Resolving]
  - Bundle branch block right [Recovering/Resolving]
  - Atrioventricular block first degree [Recovering/Resolving]
  - Cardiac failure congestive [Recovering/Resolving]
  - Cardiotoxicity [Recovering/Resolving]
  - Mitral valve incompetence [Recovering/Resolving]

NARRATIVE: CASE EVENT DATE: 202001
